FAERS Safety Report 11054332 (Version 2)
Quarter: 2015Q2

REPORT INFORMATION
  Report Type: Spontaneous
  Country: US (occurrence: US)
  Receive Date: 20150422
  Receipt Date: 20150507
  Transmission Date: 20150821
  Serious: Yes (Death)
  Sender: FDA-Public Use
  Company Number: US-UNITED THERAPEUTICS-UNT-2014-010303

PATIENT
  Age: 80 Year
  Sex: Male
  Weight: 58.96 kg

DRUGS (1)
  1. REMODULIN [Suspect]
     Active Substance: TREPROSTINIL
     Indication: PULMONARY ARTERIAL HYPERTENSION
     Dosage: 0.0165 ?G/KG, CONTINUING
     Route: 041
     Dates: start: 20140703

REACTIONS (5)
  - Scoliosis [Fatal]
  - Pulmonary hypertension [Fatal]
  - Hypoxia [Fatal]
  - Restrictive pulmonary disease [Fatal]
  - Atrial septal defect [Fatal]

NARRATIVE: CASE EVENT DATE: 201411
